FAERS Safety Report 7018623-2 (Version None)
Quarter: 2010Q3

REPORT INFORMATION
  Report Type: 
  Country: None (occurrence: None)
  Receive Date: 20100928
  Receipt Date: 20100623
  Transmission Date: 20110219
  Serious: No
  Sender: FDA-Public Use
  Company Number: US-MYLANLABS-2010S1011180

PATIENT
  Sex: Female

DRUGS (15)
  1. SPIRONOLACTONE TABLETS, USP [Suspect]
     Indication: FLUID RETENTION
     Route: 048
     Dates: start: 20100401, end: 20100601
  2. SPIRONOLACTONE TABLETS, USP [Suspect]
     Indication: CARDIAC FAILURE CONGESTIVE
     Route: 048
     Dates: start: 20100401, end: 20100601
  3. AMBIEN [Concomitant]
  4. MORPHINE [Concomitant]
  5. NEXIUM [Concomitant]
  6. LEVOTHYROXINE [Concomitant]
  7. ZOCOR [Concomitant]
  8. AMITRIPTYLINE [Concomitant]
  9. PROPRANOLOL [Concomitant]
  10. LYRICA [Concomitant]
  11. CETIRIZINE HCL [Concomitant]
  12. SINGULAIR [Concomitant]
  13. ZANAFLEX [Concomitant]
  14. LASIX [Concomitant]
  15. HYDROCODONE [Concomitant]

REACTIONS (1)
  - ALOPECIA [None]
